FAERS Safety Report 25772441 (Version 2)
Quarter: 2025Q3

REPORT INFORMATION
  Report Type: Report from Study
  Country: US (occurrence: US)
  Receive Date: 20250908
  Receipt Date: 20250918
  Transmission Date: 20251021
  Serious: Yes (Death)
  Sender: ROCHE
  Company Number: US-ROCHE-10000382073

PATIENT
  Age: 60 Year
  Sex: Female

DRUGS (1)
  1. TECENTRIQ [Suspect]
     Active Substance: ATEZOLIZUMAB
     Indication: Neuroendocrine carcinoma
     Dosage: ADMINISTER 1200 MG AS AN INTRAVENOUS INFUSION EVERY 3 WEEKS, DATE OF SERVICE; 19-NOV-2024
     Route: 042

REACTIONS (1)
  - Death [Fatal]
